FAERS Safety Report 8505677 (Version 2)
Quarter: 2012Q4

REPORT INFORMATION
  Report Type: 
  Country: US (occurrence: US)
  Receive Date: 20120412
  Receipt Date: 20121116
  Transmission Date: 20130627
  Serious: Yes (Hospitalization)
  Sender: FDA-Public Use
  Company Number: US-BAYER-2012-032912

PATIENT
  Age: 20 Year
  Sex: Female
  Weight: 68.6 kg

DRUGS (6)
  1. YAZ [Suspect]
     Dosage: UNK
  2. YASMIN [Suspect]
     Dosage: UNK
  3. MINOCYCLINE [Concomitant]
     Dosage: 100 mg, UNK
     Dates: start: 20090309
  4. CLARAVIS [Concomitant]
     Dosage: 40 mg, UNK
     Dates: start: 20090411
  5. ACCUTANE [Concomitant]
     Dosage: UNK
     Dates: start: 20090427
  6. LEVAQUIN [Concomitant]

REACTIONS (2)
  - Pulmonary embolism [None]
  - Injury [None]
